FAERS Safety Report 20711352 (Version 1)
Quarter: 2022Q2

REPORT INFORMATION
  Report Type: Spontaneous
  Country: US (occurrence: US)
  Receive Date: 20220414
  Receipt Date: 20220414
  Transmission Date: 20220720
  Serious: No
  Sender: FDA-Public Use
  Company Number: US-PFIZER INC-2021514793

PATIENT
  Age: 47 Year
  Sex: Male

DRUGS (3)
  1. INLYTA [Suspect]
     Active Substance: AXITINIB
     Indication: Mediastinal disorder
     Dosage: 5 MG
     Dates: start: 20210501
  2. INLYTA [Suspect]
     Active Substance: AXITINIB
     Dosage: 5 MG
     Dates: start: 20210506
  3. INLYTA [Suspect]
     Active Substance: AXITINIB
     Dosage: 5 MG
     Dates: start: 20210507

REACTIONS (4)
  - Dry skin [Not Recovered/Not Resolved]
  - Skin irritation [Not Recovered/Not Resolved]
  - Off label use [Unknown]
  - Product dose omission issue [Unknown]
